FAERS Safety Report 5762471-8 (Version None)
Quarter: 2008Q2

REPORT INFORMATION
  Report Type: 
  Country: None (occurrence: None)
  Receive Date: 20080523
  Receipt Date: 20080519
  Transmission Date: 20081010
  Serious: Yes (Hospitalization)
  Sender: FDA-Public Use
  Company Number: AE-2008-003

PATIENT
  Age: 62 Year
  Sex: Male

DRUGS (4)
  1. HYDROXYCHLOROQUINE SULFATE [Suspect]
     Indication: RHEUMATOID ARTHRITIS
     Dosage: 200MG DAILY
     Dates: start: 20070401, end: 20070601
  2. SULFASALAZINE [Concomitant]
  3. METHOTREXATE SODIUM [Concomitant]
  4. LEFLUNOMIDE [Concomitant]

REACTIONS (1)
  - HYPOGLYCAEMIA [None]
